FAERS Safety Report 8103447-5 (Version None)
Quarter: 2012Q1

REPORT INFORMATION
  Report Type: 
  Country: None (occurrence: None)
  Receive Date: 20120201
  Receipt Date: 20120120
  Transmission Date: 20120608
  Serious: Yes (Other)
  Sender: FDA-Public Use
  Company Number: PHHY2011BR16963

PATIENT
  Sex: Male

DRUGS (2)
  1. SPIRIVA [Concomitant]
  2. FORMOTEROL FUMARATE [Suspect]
     Indication: BRONCHITIS CHRONIC

REACTIONS (4)
  - DEAFNESS [None]
  - DEVICE MALFUNCTION [None]
  - WRONG TECHNIQUE IN DRUG USAGE PROCESS [None]
  - EMPHYSEMA [None]
